FAERS Safety Report 8804830 (Version 2)
Quarter: 2015Q1

REPORT INFORMATION
  Report Type: Report from Study
  Country: US (occurrence: US)
  Receive Date: 20120924
  Receipt Date: 20150316
  Transmission Date: 20150721
  Serious: Yes (Death)
  Sender: FDA-Public Use
  Company Number: US-ROCHE-1123403

PATIENT
  Sex: Female

DRUGS (6)
  1. AVASTIN [Suspect]
     Active Substance: BEVACIZUMAB
     Indication: BRAIN NEOPLASM MALIGNANT
  2. AVASTIN [Suspect]
     Active Substance: BEVACIZUMAB
     Indication: BRAIN NEOPLASM MALIGNANT
     Route: 042
     Dates: start: 20060106
  3. GRANISETRON [Concomitant]
     Active Substance: GRANISETRON
     Route: 048
  4. CPT-11 [Concomitant]
     Active Substance: IRINOTECAN
     Route: 042
  5. ATROPINE [Concomitant]
     Active Substance: ATROPINE
     Route: 042
  6. DECADRON [Concomitant]
     Active Substance: DEXAMETHASONE
     Route: 048

REACTIONS (6)
  - Anaemia [Unknown]
  - Fatigue [Unknown]
  - Off label use [Unknown]
  - Headache [Unknown]
  - Death [Fatal]
  - Diarrhoea [Unknown]
